FAERS Safety Report 25126163 (Version 12)
Quarter: 2025Q4

REPORT INFORMATION
  Report Type: Report from Study
  Country: CA (occurrence: CA)
  Receive Date: 20250326
  Receipt Date: 20251209
  Transmission Date: 20260118
  Serious: Yes (Other)
  Sender: CELLTRION
  Company Number: CA-CELLTRION INC.-2025CA008656

PATIENT

DRUGS (9)
  1. USTEKINUMAB [Suspect]
     Active Substance: USTEKINUMAB
     Indication: Crohn^s disease
     Dosage: 90 MG EVERY 8 WEEKS
     Route: 058
     Dates: start: 20250114
  2. USTEKINUMAB [Suspect]
     Active Substance: USTEKINUMAB
     Dosage: 90 MG EVERY 8 WEEKS
     Route: 058
     Dates: start: 20250318
  3. USTEKINUMAB [Suspect]
     Active Substance: USTEKINUMAB
     Dosage: 90 MG EVERY 8 WEEKS
     Route: 058
     Dates: start: 20250507
  4. USTEKINUMAB [Suspect]
     Active Substance: USTEKINUMAB
     Dosage: 90 MG EVERY 8 WEEKS
     Route: 058
     Dates: start: 20250104
  5. USTEKINUMAB [Suspect]
     Active Substance: USTEKINUMAB
     Dosage: 90 MG EVERY 8 WEEKS
     Route: 058
     Dates: start: 20250701
  6. USTEKINUMAB [Suspect]
     Active Substance: USTEKINUMAB
     Dosage: 90 MG EVERY 8 WEEKS (START DATE: 12 NOV)
     Route: 058
     Dates: start: 20251112
  7. USTEKINUMAB [Suspect]
     Active Substance: USTEKINUMAB
     Dosage: 520 MG WEEK 0
     Route: 042
     Dates: start: 20250112
  8. STELARA [Suspect]
     Active Substance: USTEKINUMAB
     Indication: Product used for unknown indication
  9. CETIRIZINE HYDROCHLORIDE [Concomitant]
     Active Substance: CETIRIZINE HYDROCHLORIDE
     Dosage: 10 MG, DAILY EVERY MORNING (REGULARLY)

REACTIONS (17)
  - Crohn^s disease [Unknown]
  - Supraventricular tachycardia [Unknown]
  - Cardiac operation [Recovered/Resolved]
  - Influenza like illness [Unknown]
  - Viral infection [Unknown]
  - Acne [Unknown]
  - Rash erythematous [Unknown]
  - Intentional dose omission [Unknown]
  - Needle issue [Unknown]
  - Hyperhidrosis [Unknown]
  - Productive cough [Unknown]
  - Pharyngeal paraesthesia [Unknown]
  - Malaise [Unknown]
  - Dizziness [Unknown]
  - Bronchitis [Unknown]
  - Nasopharyngitis [Unknown]
  - Influenza [Recovering/Resolving]

NARRATIVE: CASE EVENT DATE: 20250317
